FAERS Safety Report 17262274 (Version 1)
Quarter: 2020Q1

REPORT INFORMATION
  Report Type: Report from Study
  Country: IT (occurrence: IT)
  Receive Date: 20200113
  Receipt Date: 20200113
  Transmission Date: 20200409
  Serious: Yes (Hospitalization)
  Sender: FDA-Public Use
  Company Number: IT-MYLANLABS-2019M1095345

PATIENT
  Age: 74 Year
  Sex: Male

DRUGS (4)
  1. OLANZAPINE. [Concomitant]
     Active Substance: OLANZAPINE
     Dosage: UNK
  2. FONDAPARINUX [Suspect]
     Active Substance: FONDAPARINUX
     Indication: MYOCARDIAL ISCHAEMIA
     Dosage: 2.5 MILLIGRAM, QD
     Route: 058
  3. OMEPRAZOLE. [Concomitant]
     Active Substance: OMEPRAZOLE
     Dosage: UNK
  4. SALBUTAMOLO SANDOZ [Concomitant]
     Dosage: UNK

REACTIONS (5)
  - Dizziness [Recovering/Resolving]
  - Fall [Recovering/Resolving]
  - Haematoma muscle [Recovering/Resolving]
  - Anaemia [Recovering/Resolving]
  - Gait disturbance [Recovering/Resolving]

NARRATIVE: CASE EVENT DATE: 20190803
